FAERS Safety Report 24034075 (Version 1)
Quarter: 2024Q3

REPORT INFORMATION
  Report Type: Spontaneous
  Country: US (occurrence: US)
  Receive Date: 20240701
  Receipt Date: 20240701
  Transmission Date: 20241017
  Serious: No
  Sender: BAYER
  Company Number: US-BAYER-2024A092501

PATIENT

DRUGS (1)
  1. MIRALAX [Suspect]
     Active Substance: POLYETHYLENE GLYCOL 3350
     Dosage: TAKEN IN THE MORNING
     Route: 048
     Dates: start: 20240625

REACTIONS (1)
  - Abdominal pain upper [Unknown]

NARRATIVE: CASE EVENT DATE: 20240625
